FAERS Safety Report 10130113 (Version 1)
Quarter: 2014Q2

REPORT INFORMATION
  Report Type: Spontaneous
  Country: US (occurrence: None)
  Receive Date: 20140425
  Receipt Date: 20140425
  Transmission Date: 20141212
  Serious: Yes (Other)
  Sender: FDA-Public Use
  Company Number: None

PATIENT
  Age: 48 Year
  Sex: Female
  Weight: 104.33 kg

DRUGS (1)
  1. BUTRANS PATCH [Suspect]
     Indication: PAIN
     Dosage: 7 DAY PATCH APPLIED TO A SURFACE, USUALLY THE SKIN?1 MONTH

REACTIONS (2)
  - Narcolepsy [None]
  - Impaired driving ability [None]
